FAERS Safety Report 5603962-X (Version None)
Quarter: 2008Q1

REPORT INFORMATION
  Report Type: 
  Country: None (occurrence: None)
  Receive Date: 20080124
  Receipt Date: 20080124
  Transmission Date: 20080703
  Serious: No
  Sender: FDA-Public Use
  Company Number: None

PATIENT
  Age: 40 Year
  Sex: Male
  Weight: 100.6985 kg

DRUGS (1)
  1. HEPARIN [Suspect]
     Indication: THROMBOSIS PROPHYLAXIS
     Dosage: 500 UNITS (5 ML) EVERY 24 HRS IV
     Route: 042
     Dates: start: 20071203, end: 20071209

REACTIONS (3)
  - CHILLS [None]
  - INFUSION RELATED REACTION [None]
  - PYREXIA [None]
